FAERS Safety Report 9371943 (Version 1)
Quarter: 2013Q2

REPORT INFORMATION
  Report Type: Report from Study
  Country: US (occurrence: US)
  Receive Date: 20130627
  Receipt Date: 20130627
  Transmission Date: 20140414
  Serious: Yes (Other)
  Sender: FDA-Public Use
  Company Number: US-MYLANLABS-2012S1010911

PATIENT
  Age: 39 Year
  Sex: Male

DRUGS (9)
  1. CLOZAPINE TABLETS [Suspect]
  2. CLOZAPINE TABLETS [Suspect]
     Dates: start: 20120625, end: 20120705
  3. ATROPINE [Concomitant]
     Route: 048
  4. BENZTROPINE [Concomitant]
     Route: 048
  5. BUSPAR [Concomitant]
     Route: 048
  6. CITALOPRAM [Concomitant]
     Route: 048
  7. DOCUSATE [Concomitant]
     Route: 048
  8. HALDOL [Concomitant]
     Route: 048
  9. LITHIUM [Concomitant]
     Route: 048

REACTIONS (1)
  - Granulocytopenia [Not Recovered/Not Resolved]
